FAERS Safety Report 18198475 (Version 1)
Quarter: 2020Q3

REPORT INFORMATION
  Report Type: Spontaneous
  Country: US (occurrence: US)
  Receive Date: 20200826
  Receipt Date: 20200826
  Transmission Date: 20201103
  Serious: Yes (Disabling)
  Sender: FDA-Public Use
  Company Number: None

PATIENT
  Age: 49 Year
  Sex: Female
  Weight: 70.31 kg

DRUGS (1)
  1. NP THYROID [Suspect]
     Active Substance: LEVOTHYROXINE\LIOTHYRONINE
     Indication: HYPOTHYROIDISM
     Dosage: ?          QUANTITY:1 PILL;?
     Route: 048
     Dates: start: 2020, end: 20200601

REACTIONS (8)
  - Panic attack [None]
  - Alcohol interaction [None]
  - Anxiety [None]
  - Heart rate irregular [None]
  - Vision blurred [None]
  - Depression [None]
  - Drug interaction [None]
  - Insomnia [None]

NARRATIVE: CASE EVENT DATE: 20200102
